FAERS Safety Report 8493548-4 (Version None)
Quarter: 2012Q3

REPORT INFORMATION
  Report Type: 
  Country: None (occurrence: None)
  Receive Date: 20120706
  Receipt Date: 20120703
  Transmission Date: 20120928
  Serious: Yes (Death)
  Sender: FDA-Public Use
  Company Number: RS-ROXANE LABORATORIES, INC.-2012-RO-01514RO

PATIENT
  Age: 48 Year
  Sex: Male

DRUGS (7)
  1. DIAZEPAM [Suspect]
  2. MORPHINE [Suspect]
  3. CARBAMAZEPINE [Suspect]
  4. CODEINE SULFATE [Suspect]
  5. HEROIN [Suspect]
     Route: 042
  6. MIANSERIN [Suspect]
  7. MIDAZOLAM [Suspect]

REACTIONS (2)
  - HEPATIC CIRRHOSIS [None]
  - TOXICITY TO VARIOUS AGENTS [None]
